FAERS Safety Report 24814708 (Version 6)
Quarter: 2025Q2

REPORT INFORMATION
  Report Type: Spontaneous
  Country: US (occurrence: US)
  Receive Date: 20250107
  Receipt Date: 20250403
  Transmission Date: 20250717
  Serious: No
  Sender: DAIICHI
  Company Number: US-DAIICHI SANKYO, INC.-DS-2025-118221-USAA

PATIENT
  Sex: Male

DRUGS (2)
  1. TURALIO [Suspect]
     Active Substance: PEXIDARTINIB HYDROCHLORIDE
     Indication: Connective tissue neoplasm
     Dosage: 250 MG, BID
     Route: 048
     Dates: start: 20241218
  2. TURALIO [Suspect]
     Active Substance: PEXIDARTINIB HYDROCHLORIDE
     Indication: Soft tissue neoplasm

REACTIONS (10)
  - Impaired healing [Unknown]
  - Limb injury [Unknown]
  - Illness [Unknown]
  - Vomiting [Recovered/Resolved]
  - Viral test positive [Unknown]
  - Neoplasm [Unknown]
  - Pneumonia [Recovered/Resolved]
  - Illness [Recovering/Resolving]
  - Influenza [Recovering/Resolving]
  - Product dose omission issue [Not Recovered/Not Resolved]
